FAERS Safety Report 7235307-6 (Version None)
Quarter: 2011Q1

REPORT INFORMATION
  Report Type: 
  Country: None (occurrence: None)
  Receive Date: 20110120
  Receipt Date: 20110111
  Transmission Date: 20110831
  Serious: Yes (Death, Hospitalization)
  Sender: FDA-Public Use
  Company Number: CA-JNJFOC-20070702222

PATIENT
  Sex: Male
  Weight: 88 kg

DRUGS (7)
  1. REMICADE [Suspect]
     Indication: RHEUMATOID ARTHRITIS
     Route: 042
  2. ARAVA [Concomitant]
  3. SOLU-CORTEF [Concomitant]
     Route: 042
  4. BENADRYL [Concomitant]
     Route: 042
  5. METHOTREXATE [Concomitant]
     Route: 048
  6. PREDNISONE [Concomitant]
  7. FOLIC ACID [Concomitant]

REACTIONS (4)
  - DEATH [None]
  - PULMONARY HYPERTENSION [None]
  - AORTIC ANEURYSM [None]
  - PULMONARY FIBROSIS [None]
